FAERS Safety Report 9009676 (Version 2)
Quarter: 2013Q1

REPORT INFORMATION
  Report Type: Spontaneous
  Country: US (occurrence: US)
  Receive Date: 20130110
  Receipt Date: 20130122
  Transmission Date: 20140127
  Serious: Yes (Death)
  Sender: FDA-Public Use
  Company Number: US-PFIZER INC-2012322186

PATIENT
  Age: 70 Year
  Sex: Male

DRUGS (1)
  1. VFEND [Suspect]
     Indication: LEUKAEMIA
     Dosage: 200 MG, 2X/DAY
     Dates: start: 20110504

REACTIONS (3)
  - Pneumonia [Fatal]
  - Leukaemia [Fatal]
  - Disease progression [Fatal]
